FAERS Safety Report 18968520 (Version 1)
Quarter: 2021Q1

REPORT INFORMATION
  Report Type: Spontaneous
  Country: US (occurrence: US)
  Receive Date: 20210303
  Receipt Date: 20210303
  Transmission Date: 20210420
  Serious: Yes (Death)
  Sender: FDA-Public Use
  Company Number: None

PATIENT
  Age: 69 Year
  Sex: Male
  Weight: 71.67 kg

DRUGS (2)
  1. ZITHROMAX [Suspect]
     Active Substance: AZITHROMYCIN DIHYDRATE
     Route: 042
     Dates: start: 20201129, end: 20201204
  2. REMDESIVIR 100MG [Suspect]
     Active Substance: REMDESIVIR
     Indication: COVID-19 TREATMENT
     Dosage: ?          OTHER DOSE:200MG X 1, 100MG;?
     Route: 042
     Dates: start: 20201130, end: 20201204

REACTIONS (2)
  - Death [None]
  - COVID-19 [None]

NARRATIVE: CASE EVENT DATE: 20201222
